FAERS Safety Report 14740630 (Version 1)
Quarter: 2018Q2

REPORT INFORMATION
  Report Type: Spontaneous
  Country: US (occurrence: US)
  Receive Date: 20180410
  Receipt Date: 20180410
  Transmission Date: 20180711
  Serious: Yes (Other)
  Sender: FDA-Public Use
  Company Number: US-PFIZER INC-2018134113

PATIENT
  Age: 76 Year
  Sex: Male

DRUGS (2)
  1. ROBITUSSIN COUGH AND CHEST CONGESTION SUGAR FREE DM [Suspect]
     Active Substance: DEXTROMETHORPHAN HYDROBROMIDE\GUAIFENESIN
     Dosage: EARLY THIS MORNING HE ONLY HAD 2 TEASPOONS
     Route: 048
     Dates: end: 20180329
  2. ROBITUSSIN COUGH AND CHEST CONGESTION SUGAR FREE DM [Suspect]
     Active Substance: DEXTROMETHORPHAN HYDROBROMIDE\GUAIFENESIN
     Indication: COUGH
     Dosage: 2-4 TEASPOONS BY MOUTH AS NEEDED
     Route: 048
     Dates: start: 2016

REACTIONS (3)
  - Loss of consciousness [Recovered/Resolved]
  - Blood pressure abnormal [Recovered/Resolved]
  - Intentional product misuse [Unknown]

NARRATIVE: CASE EVENT DATE: 2016
